FAERS Safety Report 4834963-7 (Version None)
Quarter: 2005Q4

REPORT INFORMATION
  Report Type: 
  Country: None (occurrence: None)
  Receive Date: 20051114
  Receipt Date: 20051031
  Transmission Date: 20060501
  Serious: Yes (Other)
  Sender: FDA-Public Use
  Company Number: 2005S1000234

PATIENT
  Age: 58 Year
  Sex: Male
  Weight: 70 kg

DRUGS (5)
  1. CUBICIN [Suspect]
     Indication: STAPHYLOCOCCAL INFECTION
     Dosage: 43 MG/KG/X1/IV
     Route: 042
     Dates: start: 20051001
  2. INSULIN [Concomitant]
  3. MORPHINE [Concomitant]
  4. BACLOFEN [Concomitant]
  5. PANTOPRAZOLE [Concomitant]

REACTIONS (3)
  - ACCIDENTAL OVERDOSE [None]
  - DYSKINESIA [None]
  - MEDICATION ERROR [None]
